FAERS Safety Report 5923954-0 (Version None)
Quarter: 2008Q3

REPORT INFORMATION
  Report Type: 
  Country: None (occurrence: None)
  Receive Date: 20080909
  Receipt Date: 20080715
  Transmission Date: 20090109
  Serious: Yes (Death)
  Sender: FDA-Public Use
  Company Number: 163-20785-08061867

PATIENT
  Age: 65 Year
  Sex: Male

DRUGS (1)
  1. THALOMID [Suspect]
     Indication: HEPATIC NEOPLASM MALIGNANT
     Dosage: 200 MG, 4 IN 1 D, ORAL
     Route: 048
     Dates: start: 20080523

REACTIONS (2)
  - METASTASES TO LIVER [None]
  - METASTATIC MALIGNANT MELANOMA [None]
